FAERS Safety Report 17228897 (Version 3)
Quarter: 2020Q1

REPORT INFORMATION
  Report Type: Spontaneous
  Country: CN (occurrence: CN)
  Receive Date: 20200103
  Receipt Date: 20200213
  Transmission Date: 20200409
  Serious: Yes (Other)
  Sender: FDA-Public Use
  Company Number: CN-PFIZER INC-2019558083

PATIENT
  Age: 54 Year
  Sex: Female

DRUGS (2)
  1. METHYLPREDNISOLONE SODIUM SUCCINATE. [Suspect]
     Active Substance: METHYLPREDNISOLONE SODIUM SUCCINATE
     Indication: SPONDYLOARTHROPATHY
     Dosage: 1 G, DAILY (DILUTED IN 500 ML OF SALINE SOLUTION)
     Route: 042
  2. METHYLPREDNISOLONE SODIUM SUCCINATE. [Suspect]
     Active Substance: METHYLPREDNISOLONE SODIUM SUCCINATE
     Indication: NEUROMYELITIS OPTICA SPECTRUM DISORDER

REACTIONS (2)
  - Urinary retention [Recovering/Resolving]
  - Paraplegia [Recovering/Resolving]
